FAERS Safety Report 11083724 (Version 2)
Quarter: 2015Q2

REPORT INFORMATION
  Report Type: Other
  Country: GB (occurrence: GB)
  Receive Date: 20150501
  Receipt Date: 20150531
  Transmission Date: 20150821
  Serious: Yes (Hospitalization)
  Sender: FDA-Public Use
  Company Number: GB-MYLANLABS-2015M1013040

PATIENT

DRUGS (13)
  1. BISOPROLOL [Suspect]
     Active Substance: BISOPROLOL
     Indication: PRODUCT USED FOR UNKNOWN INDICATION
     Dosage: 5 MG, QD
     Route: 048
  2. PLACEBO [Suspect]
     Active Substance: UNSPECIFIED INGREDIENT
     Indication: VISUAL IMPAIRMENT
     Dosage: CODE NOT BROKEN
     Route: 031
     Dates: start: 20150106
  3. PLACEBO [Suspect]
     Active Substance: UNSPECIFIED INGREDIENT
     Dosage: CODE NOT BROKEN
     Route: 031
     Dates: start: 20140807
  4. PLACEBO [Suspect]
     Active Substance: UNSPECIFIED INGREDIENT
     Dosage: CODE NOT BROKEN
     Route: 031
     Dates: start: 20150203, end: 20150203
  5. PLACEBO [Suspect]
     Active Substance: UNSPECIFIED INGREDIENT
     Dosage: CODE NOT BROKEN
     Route: 031
     Dates: start: 20140409
  6. LUCENTIS [Suspect]
     Active Substance: RANIBIZUMAB
     Dosage: CODE NOT BROKEN
     Route: 031
     Dates: start: 20141212
  7. LUCENTIS [Suspect]
     Active Substance: RANIBIZUMAB
     Dosage: CODE NOT BROKEN
     Route: 031
     Dates: start: 20140409
  8. LUCENTIS [Suspect]
     Active Substance: RANIBIZUMAB
     Indication: VISUAL IMPAIRMENT
     Dosage: CODE NOT BROKEN
     Route: 031
     Dates: start: 20140617
  9. PLACEBO [Suspect]
     Active Substance: UNSPECIFIED INGREDIENT
     Dosage: CODE NOT BROKEN
     Route: 031
     Dates: start: 20141212
  10. LUCENTIS [Suspect]
     Active Substance: RANIBIZUMAB
     Dosage: CODE NOT BROKEN
     Route: 031
     Dates: start: 20150203, end: 20150203
  11. LUCENTIS [Suspect]
     Active Substance: RANIBIZUMAB
     Dosage: CODE NOT BROKEN
     Route: 031
     Dates: start: 20150106
  12. LUCENTIS [Suspect]
     Active Substance: RANIBIZUMAB
     Dosage: CODE NOT BROKEN
     Route: 031
     Dates: start: 20140807
  13. PLACEBO [Suspect]
     Active Substance: UNSPECIFIED INGREDIENT
     Dosage: CODE NOT BROKEN
     Route: 031
     Dates: start: 20140617

REACTIONS (3)
  - Pneumothorax [Recovered/Resolved]
  - Pneumonia [Recovered/Resolved]
  - Chronic obstructive pulmonary disease [Recovering/Resolving]

NARRATIVE: CASE EVENT DATE: 20140502
